FAERS Safety Report 6553522-1 (Version None)
Quarter: 2010Q1

REPORT INFORMATION
  Report Type: 
  Country: None (occurrence: None)
  Receive Date: 20100127
  Receipt Date: 20100118
  Transmission Date: 20100710
  Serious: Yes (Death, Life-Threatening, Hospitalization)
  Sender: FDA-Public Use
  Company Number: FR-ROCHE-678692

PATIENT
  Sex: Female
  Weight: 67 kg

DRUGS (2)
  1. CAPECITABINE [Suspect]
     Dosage: 1500 UNK, Q14D
     Route: 048
     Dates: start: 20090623
  2. LAPATINIB [Suspect]
     Dosage: 750 UNK, Q21D
     Route: 048
     Dates: start: 20090623

REACTIONS (1)
  - GENERAL PHYSICAL CONDITION ABNORMAL [None]
